FAERS Safety Report 4913765-7 (Version None)
Quarter: 2006Q1

REPORT INFORMATION
  Report Type: 
  Country: None (occurrence: None)
  Receive Date: 20060216
  Receipt Date: 20060213
  Transmission Date: 20060701
  Serious: Yes (Other)
  Sender: FDA-Public Use
  Company Number: US-GLAXOSMITHKLINE-A0593474A

PATIENT
  Age: 55 Year
  Sex: Male

DRUGS (1)
  1. AVANDARYL [Suspect]
     Route: 048

REACTIONS (4)
  - BALANCE DISORDER [None]
  - DIZZINESS [None]
  - HYPOTHYROIDISM [None]
  - VOMITING [None]
